FAERS Safety Report 26063607 (Version 1)
Quarter: 2025Q4

REPORT INFORMATION
  Report Type: Spontaneous
  Country: GB (occurrence: GB)
  Receive Date: 20251119
  Receipt Date: 20251119
  Transmission Date: 20260118
  Serious: Yes (Other)
  Sender: ACCORD
  Company Number: GB-MLMSERVICE-20251103-PI697435-00077-1

PATIENT
  Age: 51 Year
  Sex: Female

DRUGS (1)
  1. CAPECITABINE [Suspect]
     Active Substance: CAPECITABINE
     Indication: Adenocarcinoma of colon
     Dosage: 30% DOSE REDUCTION

REACTIONS (2)
  - Quadriparesis [Recovered/Resolved]
  - Neurotoxicity [Recovered/Resolved]
